FAERS Safety Report 10449089 (Version 1)
Quarter: 2014Q3

REPORT INFORMATION
  Report Type: Spontaneous
  Country: US (occurrence: None)
  Receive Date: 20140911
  Receipt Date: 20140911
  Transmission Date: 20150326
  Serious: No
  Sender: FDA-Public Use
  Company Number: None

PATIENT
  Age: 59 Year
  Sex: Male
  Weight: 131.54 kg

DRUGS (1)
  1. PHENYTOIN 100 MG [Suspect]
     Active Substance: PHENYTOIN
     Indication: CONVULSION
     Dosage: 5 TABLETS QD ORAL
     Route: 048

REACTIONS (2)
  - Drug ineffective [None]
  - Product substitution issue [None]
